FAERS Safety Report 24773505 (Version 1)
Quarter: 2024Q4

REPORT INFORMATION
  Report Type: Spontaneous
  Country: JP (occurrence: JP)
  Receive Date: 20241225
  Receipt Date: 20241225
  Transmission Date: 20250114
  Serious: Yes (Hospitalization)
  Sender: ROCHE
  Company Number: JP-CP_KK-2024JP002409

PATIENT
  Age: 78 Year
  Sex: Female

DRUGS (2)
  1. BEVACIZUMAB [Suspect]
     Active Substance: BEVACIZUMAB
     Indication: Colon cancer
     Dosage: CAPE+BEV
     Route: 065
  2. CAPECITABINE [Suspect]
     Active Substance: CAPECITABINE
     Indication: Colon cancer
     Dosage: CAPE+BEV
     Route: 065

REACTIONS (1)
  - Leukoencephalopathy [Recovering/Resolving]
